FAERS Safety Report 6494537-1 (Version None)
Quarter: 2009Q4

REPORT INFORMATION
  Report Type: 
  Country: None (occurrence: None)
  Receive Date: 20091214
  Receipt Date: 20090304
  Transmission Date: 20100525
  Serious: No
  Sender: FDA-Public Use
  Company Number: US-BRISTOL-MYERS SQUIBB COMPANY-14525208

PATIENT
  Age: 48 Year
  Sex: Female
  Weight: 64 kg

DRUGS (3)
  1. ABILIFY [Suspect]
     Indication: DEPRESSION
     Dates: start: 20090120
  2. ABILIFY [Suspect]
     Indication: ANXIETY
     Dates: start: 20090120
  3. KLONOPIN [Concomitant]

REACTIONS (1)
  - BURNING SENSATION [None]
